FAERS Safety Report 25624653 (Version 2)
Quarter: 2025Q3

REPORT INFORMATION
  Report Type: Report from Study
  Country: JP (occurrence: JP)
  Receive Date: 20250730
  Receipt Date: 20250825
  Transmission Date: 20251020
  Serious: No
  Sender: ASTELLAS
  Company Number: JP-ASTELLAS-2025-AER-037472

PATIENT
  Age: 71 Year
  Sex: Male

DRUGS (2)
  1. PADCEV [Suspect]
     Active Substance: ENFORTUMAB VEDOTIN-EJFV
     Indication: Transitional cell carcinoma metastatic
     Route: 042
     Dates: start: 2025
  2. PEMBROLIZUMAB [Concomitant]
     Active Substance: PEMBROLIZUMAB
     Indication: Transitional cell carcinoma metastatic
     Route: 065
     Dates: start: 2025

REACTIONS (2)
  - Hepatic enzyme increased [Recovered/Resolved]
  - Rash [Recovered/Resolved]

NARRATIVE: CASE EVENT DATE: 20250101
